FAERS Safety Report 6500460-6 (Version None)
Quarter: 2009Q4

REPORT INFORMATION
  Report Type: 
  Country: None (occurrence: None)
  Receive Date: 20091216
  Receipt Date: 20091203
  Transmission Date: 20100525
  Serious: Yes (Other)
  Sender: FDA-Public Use
  Company Number: US-SANOFI-AVENTIS-2009SA006987

PATIENT
  Sex: Male

DRUGS (6)
  1. MULTAQ [Suspect]
     Indication: ATRIAL FIBRILLATION
     Route: 048
  2. MULTAQ [Suspect]
     Indication: ATRIAL FLUTTER
     Route: 048
  3. CALCIUM CHANNEL BLOCKERS [Suspect]
     Indication: ATRIAL FIBRILLATION
     Route: 065
  4. CALCIUM CHANNEL BLOCKERS [Suspect]
     Indication: ATRIAL FLUTTER
     Route: 065
  5. BETA BLOCKING AGENTS [Suspect]
     Indication: ATRIAL FIBRILLATION
     Route: 065
  6. BETA BLOCKING AGENTS [Suspect]
     Indication: ATRIAL FLUTTER
     Route: 065

REACTIONS (2)
  - ATRIAL FIBRILLATION [None]
  - ATRIAL FLUTTER [None]
